FAERS Safety Report 4527933-X (Version None)
Quarter: 2004Q4

REPORT INFORMATION
  Report Type: 
  Country: None (occurrence: None)
  Receive Date: 20041123
  Receipt Date: 20031010
  Transmission Date: 20050328
  Serious: Yes (Hospitalization)
  Sender: FDA-Public Use
  Company Number: 2003111745

PATIENT
  Sex: Female

DRUGS (3)
  1. LIPITOR [Suspect]
     Indication: ILL-DEFINED DISORDER
  2. DIGOXIN [Concomitant]
  3. HYOSCYAMINE (HYOSCYAMINE) [Concomitant]

REACTIONS (5)
  - BLOOD CHOLESTEROL INCREASED [None]
  - BRONCHITIS [None]
  - FALL [None]
  - MALAISE [None]
  - UNEVALUABLE EVENT [None]
